FAERS Safety Report 4702929-3 (Version None)
Quarter: 2005Q2

REPORT INFORMATION
  Report Type: 
  Country: None (occurrence: None)
  Receive Date: 20050629
  Receipt Date: 20050617
  Transmission Date: 20051028
  Serious: Yes (Hospitalization)
  Sender: FDA-Public Use
  Company Number: US-JNJFOC-20050605694

PATIENT
  Sex: Female
  Weight: 74.39 kg

DRUGS (11)
  1. DURAGESIC-100 [Suspect]
     Route: 062
     Dates: start: 20010101
  2. DURAGESIC-100 [Suspect]
     Route: 062
     Dates: start: 20010101
  3. DURAGESIC-100 [Suspect]
     Route: 062
     Dates: start: 20010101
  4. DURAGESIC-100 [Suspect]
     Route: 062
     Dates: start: 20010101
  5. DURAGESIC-100 [Suspect]
     Route: 062
     Dates: start: 20010101
  6. DURAGESIC-100 [Suspect]
     Route: 062
     Dates: start: 20010101
  7. NEURONTIN [Concomitant]
     Route: 049
     Dates: start: 19950101
  8. FLEXERIL [Concomitant]
     Route: 049
     Dates: start: 19950101
  9. XANAX [Concomitant]
     Indication: ANXIETY
     Route: 049
  10. ZOLOFT [Concomitant]
     Indication: DEPRESSION
     Route: 049
     Dates: start: 19950101
  11. NEXIUM [Concomitant]
     Route: 049
     Dates: start: 20010101

REACTIONS (12)
  - BIPOLAR DISORDER [None]
  - CARDIAC FAILURE CONGESTIVE [None]
  - CHEST PAIN [None]
  - COLOSTOMY CLOSURE [None]
  - COMA [None]
  - DEHYDRATION [None]
  - DIARRHOEA [None]
  - DRUG INEFFECTIVE [None]
  - DRUG WITHDRAWAL SYNDROME [None]
  - INTESTINAL GANGRENE [None]
  - INTESTINAL OBSTRUCTION [None]
  - THROMBOSIS [None]
